FAERS Safety Report 23206414 (Version 1)
Quarter: 2023Q4

REPORT INFORMATION
  Report Type: Other
  Country: US (occurrence: US)
  Receive Date: 20231120
  Receipt Date: 20231120
  Transmission Date: 20240109
  Serious: No
  Sender: FDA-Public Use
  Company Number: US-UROVANT SCIENCES GMBH-202306-URV-001216

PATIENT
  Age: 69 Year
  Sex: Female

DRUGS (1)
  1. GEMTESA [Suspect]
     Active Substance: VIBEGRON
     Indication: Micturition urgency
     Dosage: 75 MG, QD
     Route: 048
     Dates: end: 202306

REACTIONS (2)
  - Product dispensing error [Unknown]
  - Product availability issue [Unknown]

NARRATIVE: CASE EVENT DATE: 20230601
